FAERS Safety Report 4568252-5 (Version None)
Quarter: 2005Q1

REPORT INFORMATION
  Report Type: 
  Country: None (occurrence: None)
  Receive Date: 20050131
  Receipt Date: 20050117
  Transmission Date: 20050727
  Serious: Yes (Hospitalization)
  Sender: FDA-Public Use
  Company Number: 2005CG00140

PATIENT
  Age: 78 Year
  Sex: Male

DRUGS (9)
  1. OMEPRAZOLE [Suspect]
     Dosage: 10 MG DAILY PO
     Route: 048
     Dates: start: 20040615, end: 20050101
  2. LEVOTHYROX [Suspect]
     Dosage: 150 UG DAILY PO
     Route: 048
     Dates: start: 20010615
  3. AVODART [Suspect]
     Dosage: 1 DF DAILY PO
     Route: 048
     Dates: start: 20041115, end: 20041217
  4. AVODART [Suspect]
     Dosage: 1 DF DAILY PO
     Route: 048
     Dates: start: 20041228, end: 20050105
  5. PREVISCAN [Suspect]
     Dosage: 10 MG DAILY PO
     Route: 048
     Dates: start: 20040615, end: 20041217
  6. PREVISCAN [Suspect]
     Dosage: 10 MG DAILY PO
     Route: 048
     Dates: start: 20041220, end: 20041231
  7. TARDYFERON /GRF/ [Suspect]
     Dosage: 80 MG DAILY PO
     Route: 048
     Dates: start: 20040615
  8. CORDARONE [Suspect]
     Dates: start: 20030615
  9. ATARAX [Suspect]
     Dosage: 2 DF DAILY PO
     Route: 048
     Dates: start: 20040615

REACTIONS (6)
  - C-REACTIVE PROTEIN INCREASED [None]
  - DERMATITIS EXFOLIATIVE [None]
  - DIALYSIS [None]
  - HYPERSENSITIVITY [None]
  - IMMUNE SYSTEM DISORDER [None]
  - RENAL FAILURE ACUTE [None]
